FAERS Safety Report 7088896-9 (Version None)
Quarter: 2010Q4

REPORT INFORMATION
  Report Type: 
  Country: None (occurrence: None)
  Receive Date: 20101029
  Receipt Date: 20101015
  Transmission Date: 20110411
  Serious: Yes (Death, Hospitalization)
  Sender: FDA-Public Use
  Company Number: DSA_43762_2010

PATIENT
  Sex: Female

DRUGS (11)
  1. XENAZINE [Suspect]
     Indication: HUNTINGTON'S DISEASE
     Dosage: 12.5 MG TID ORAL
     Route: 048
     Dates: start: 20090401
  2. ATIVAN [Concomitant]
  3. SEROQUEL [Concomitant]
  4. ANAFRANIL [Concomitant]
  5. ALBUTEROL [Concomitant]
  6. TYLENOL WITH CODEIN #3 [Concomitant]
  7. MULTI-VITAMINS [Concomitant]
  8. FERROUS SULFATE [Concomitant]
  9. SODIUM BICARBONATE [Concomitant]
  10. OXYBUTYNIN [Concomitant]
  11. POTASSIUM CHLORIDE [Concomitant]

REACTIONS (1)
  - HOSPITALISATION [None]
